FAERS Safety Report 5262358-3 (Version None)
Quarter: 2007Q1

REPORT INFORMATION
  Report Type: 
  Country: None (occurrence: None)
  Receive Date: 20070309
  Receipt Date: 20070309
  Transmission Date: 20070707
  Serious: Yes (Other)
  Sender: FDA-Public Use
  Company Number: None

PATIENT
  Age: 17 Year
  Sex: Male
  Weight: 68.0396 kg

DRUGS (1)
  1. TAMIFLU [Suspect]
     Indication: INFLUENZA
     Dosage: 1 CAPSULE 2X''S DAILY PO
     Route: 048
     Dates: start: 20070213, end: 20070215

REACTIONS (7)
  - DIZZINESS [None]
  - DRUG THERAPY CHANGED [None]
  - HALLUCINATION [None]
  - IMPAIRED WORK ABILITY [None]
  - MALAISE [None]
  - NEUROLOGICAL EXAMINATION ABNORMAL [None]
  - SOMNOLENCE [None]
